FAERS Safety Report 4382949-1 (Version None)
Quarter: 2004Q2

REPORT INFORMATION
  Report Type: 
  Country: None (occurrence: None)
  Receive Date: 20040617
  Receipt Date: 20040610
  Transmission Date: 20050107
  Serious: Yes (Hospitalization)
  Sender: FDA-Public Use
  Company Number: 2004-02600

PATIENT
  Age: 8 Day
  Sex: Female
  Weight: 3.9 kg

DRUGS (1)
  1. HALOPERIDOL [Suspect]
     Indication: DRUG EXPOSURE DURING PREGNANCY
     Dosage: 200 MG Q TWO WEEKS VIA MOTHER, TRANSPLACENTAL
     Route: 064

REACTIONS (2)
  - DYSKINESIA NEONATAL [None]
  - MATERNAL DRUGS AFFECTING FOETUS [None]
